FAERS Safety Report 15067777 (Version 1)
Quarter: 2018Q2

REPORT INFORMATION
  Report Type: Spontaneous
  Country: US (occurrence: US)
  Receive Date: 20180606
  Receipt Date: 20180606
  Transmission Date: 20180711
  Serious: No
  Sender: FDA-Public Use
  Company Number: None

PATIENT
  Age: 49 Year
  Sex: Female

DRUGS (1)
  1. HUMIRA [Suspect]
     Active Substance: ADALIMUMAB
     Indication: PSORIASIS
     Dosage: OTHER DOSE:2 PENS ON DAY 1, 1;PEN ON DAY8, THEN I ?OTHER FREQUENCY:2 PENS ON DAY 1, 1 PEN ON DAY8, THEN 1  EVERY 2 ?
     Route: 058
     Dates: start: 20180529

REACTIONS (5)
  - Stress [None]
  - Depression [None]
  - Incorrect dose administered by device [None]
  - Wrong technique in product usage process [None]
  - Hyperhidrosis [None]

NARRATIVE: CASE EVENT DATE: 20180530
